FAERS Safety Report 7285906-0 (Version None)
Quarter: 2011Q1

REPORT INFORMATION
  Report Type: 
  Country: None (occurrence: None)
  Receive Date: 20110210
  Receipt Date: 20110201
  Transmission Date: 20110831
  Serious: Yes (Other)
  Sender: FDA-Public Use
  Company Number: US-ASTRAZENECA-2008UW24794

PATIENT
  Age: 68 Year
  Sex: Female
  Weight: 61.9 kg

DRUGS (7)
  1. TOPROL-XL [Suspect]
     Route: 048
  2. AMBIEN CR [Concomitant]
     Route: 065
  3. MULTIVITAMIN [Concomitant]
     Route: 065
  4. HYDROCHLOROTHIAZIDE [Concomitant]
     Route: 065
  5. CRESTOR [Concomitant]
     Route: 048
  6. TRICOR [Concomitant]
     Route: 065
  7. ARIMIDEX [Suspect]
     Indication: BREAST CANCER
     Route: 048
     Dates: start: 20060101

REACTIONS (9)
  - ARTHRALGIA [None]
  - DIZZINESS [None]
  - CHILLS [None]
  - HYPERHIDROSIS [None]
  - ADVERSE EVENT [None]
  - LOSS OF CONSCIOUSNESS [None]
  - WEIGHT INCREASED [None]
  - HOT FLUSH [None]
  - DIARRHOEA [None]
